FAERS Safety Report 8087806-5 (Version None)
Quarter: 2012Q1

REPORT INFORMATION
  Report Type: 
  Country: None (occurrence: None)
  Receive Date: 20120128
  Receipt Date: 20110606
  Transmission Date: 20120608
  Serious: No
  Sender: FDA-Public Use
  Company Number: US-ABBOTT-11P-163-0730492-00

PATIENT
  Sex: Female
  Weight: 81.72 kg

DRUGS (9)
  1. HYDROXYCHLOROQUINE SULFATE [Concomitant]
     Indication: RHEUMATOID ARTHRITIS
  2. SAVELLA [Concomitant]
     Indication: FIBROMYALGIA
  3. METHOTREXATE [Concomitant]
     Indication: RHEUMATOID ARTHRITIS
     Route: 048
  4. HUMIRA [Suspect]
     Indication: RHEUMATOID ARTHRITIS
     Dates: start: 20110508
  5. TRAMADOL HCL [Concomitant]
     Indication: PAIN
  6. HYDROCODONE BITARTRATE [Concomitant]
     Indication: PAIN
  7. VITAMIN D [Concomitant]
     Indication: VITAMIN SUPPLEMENTATION
  8. CLONAZEPAM [Concomitant]
     Indication: MUSCLE SPASMS
  9. PREDNISONE TAB [Concomitant]
     Indication: RHEUMATOID ARTHRITIS

REACTIONS (5)
  - CONTUSION [None]
  - INJECTION SITE PAIN [None]
  - MYALGIA [None]
  - ASTHENIA [None]
  - FATIGUE [None]
